FAERS Safety Report 10219797 (Version 2)
Quarter: 2014Q2

REPORT INFORMATION
  Report Type: Spontaneous
  Country: US (occurrence: US)
  Receive Date: 20140605
  Receipt Date: 20140605
  Transmission Date: 20141212
  Serious: Yes (Other)
  Sender: FDA-Public Use
  Company Number: US-PFIZER INC-2014150107

PATIENT
  Age: 53 Year
  Sex: Female
  Weight: 73 kg

DRUGS (7)
  1. EFFEXOR XR [Suspect]
     Indication: MOOD ALTERED
     Dosage: 150 MG, 2X/DAY
  2. EFFEXOR XR [Suspect]
     Indication: HOT FLUSH
  3. EFFEXOR XR [Suspect]
     Indication: VULVOVAGINAL BURNING SENSATION
  4. EFFEXOR XR [Suspect]
     Indication: DEPRESSION
  5. VITAMIN D [Concomitant]
     Indication: OSTEOPOROSIS
     Dosage: UNK
  6. COENZYME Q10 [Concomitant]
     Dosage: UNK
  7. VESICARE [Concomitant]
     Indication: URINARY INCONTINENCE
     Dosage: 10 MG, DAILY

REACTIONS (1)
  - Breast cancer [Unknown]
